FAERS Safety Report 24553567 (Version 1)
Quarter: 2024Q4

REPORT INFORMATION
  Report Type: Spontaneous
  Country: US (occurrence: US)
  Receive Date: 20241028
  Receipt Date: 20241028
  Transmission Date: 20250115
  Serious: No
  Sender: ROCHE
  Company Number: US-ROCHE-3489103

PATIENT
  Age: 12 Year
  Sex: Female

DRUGS (1)
  1. NUTROPIN AQ [Suspect]
     Active Substance: SOMATROPIN
     Indication: Growth hormone deficiency
     Dosage: NUSPIN 10 ;ONGOING: YES
     Route: 058

REACTIONS (3)
  - Pain [Unknown]
  - Injection site hypersensitivity [Unknown]
  - Burning sensation [Unknown]
